FAERS Safety Report 10253198 (Version 1)
Quarter: 2014Q2

REPORT INFORMATION
  Report Type: Spontaneous
  Country: US (occurrence: None)
  Receive Date: 20140619
  Receipt Date: 20140619
  Transmission Date: 20141212
  Serious: Yes (Other)
  Sender: FDA-Public Use
  Company Number: None

PATIENT
  Age: 13 Year
  Sex: Male
  Weight: 64 kg

DRUGS (3)
  1. CLONIDINE [Suspect]
     Indication: ATTENTION DEFICIT/HYPERACTIVITY DISORDER
     Dosage: 0.1 MG TABLETS 1 Q AM + 2 Q PM ORAL
     Route: 048
     Dates: start: 20140513, end: 20140523
  2. FANAPT [Concomitant]
  3. BUSPIRONE [Concomitant]

REACTIONS (5)
  - Product substitution issue [None]
  - Rash pruritic [None]
  - Tremor [None]
  - Diarrhoea [None]
  - Attention deficit/hyperactivity disorder [None]
